FAERS Safety Report 23450686 (Version 2)
Quarter: 2024Q1

REPORT INFORMATION
  Report Type: Spontaneous
  Country: US (occurrence: US)
  Receive Date: 20240129
  Receipt Date: 20240209
  Transmission Date: 20240410
  Serious: Yes (Hospitalization, Other)
  Sender: FDA-Public Use
  Company Number: US-HISAMITSU-2024-US-002552

PATIENT
  Age: 75 Year
  Sex: Female
  Weight: 74.84 kg

DRUGS (5)
  1. SALONPAS PAIN RELIEVING [Suspect]
     Active Substance: CAMPHOR (SYNTHETIC)\MENTHOL\METHYL SALICYLATE
     Indication: Analgesic therapy
     Dosage: 1 TO 4 PATCHES APPLIED AS DIRECTED
     Route: 061
     Dates: start: 20240113, end: 20240117
  2. GLIPIZIDE [Concomitant]
     Active Substance: GLIPIZIDE
  3. METOPROLOL [Concomitant]
     Active Substance: METOPROLOL
  4. ELIQUIS [Concomitant]
     Active Substance: APIXABAN
  5. ATORVASTATIN [Concomitant]
     Active Substance: ATORVASTATIN

REACTIONS (6)
  - Heart rate increased [Recovered/Resolved]
  - Intentional product misuse [Recovered/Resolved]
  - Atrial fibrillation [Recovered/Resolved]
  - Pruritus [Recovered/Resolved]
  - Atrial flutter [Recovered/Resolved]
  - Dizziness [Recovered/Resolved]

NARRATIVE: CASE EVENT DATE: 20240113
